FAERS Safety Report 20554088 (Version 1)
Quarter: 2022Q1

REPORT INFORMATION
  Report Type: Report from Study
  Country: US (occurrence: US)
  Receive Date: 20220304
  Receipt Date: 20220304
  Transmission Date: 20220424
  Serious: Yes (Hospitalization)
  Sender: FDA-Public Use
  Company Number: US-BAXTER-2022BAX004391

PATIENT
  Age: 31 Year
  Sex: Female
  Weight: 57.7 kg

DRUGS (21)
  1. CYCLOPHOSPHAMIDE [Suspect]
     Active Substance: CYCLOPHOSPHAMIDE
     Indication: Chronic myeloid leukaemia
     Dosage: 750MG/M2, IV DAY 5 Q28 DAYS
     Route: 042
     Dates: start: 20220118, end: 20220118
  2. DOXIL [Suspect]
     Active Substance: DOXORUBICIN HYDROCHLORIDE
     Indication: Chronic myeloid leukaemia
     Dosage: 10 MG/M2/DAY, CIV DAYS 1-4 Q28 DAYS
     Route: 042
     Dates: start: 20220114, end: 20220117
  3. INOTUZUMAB OZOGAMICIN [Suspect]
     Active Substance: INOTUZUMAB OZOGAMICIN
     Indication: Chronic myeloid leukaemia
     Dosage: DAYS 8 AND 15 OF EVERY 28 DAY CYCLE
     Route: 065
     Dates: start: 20211220, end: 20220128
  4. VINCRISTINE SULFATE [Suspect]
     Active Substance: VINCRISTINE SULFATE
     Indication: Chronic myeloid leukaemia
     Dosage: 0.4 MG/M2/DAY, DAYS 1-4 Q28 DAYS
     Route: 042
     Dates: start: 20220114, end: 20220117
  5. ETOPOSIDE [Suspect]
     Active Substance: ETOPOSIDE
     Indication: Chronic myeloid leukaemia
     Dosage: 50 MG/M2/DAY, CIV, DAYS 1-4 Q28 DAYS
     Route: 042
     Dates: start: 20220114, end: 20220117
  6. VITAMIN D3 [Concomitant]
     Active Substance: CHOLECALCIFEROL
     Indication: Product used for unknown indication
     Route: 065
  7. ESTRACE [Concomitant]
     Active Substance: ESTRADIOL
     Indication: Product used for unknown indication
     Route: 065
  8. DIFLUCAN [Concomitant]
     Active Substance: FLUCONAZOLE
     Indication: Product used for unknown indication
     Route: 065
  9. LANOLIN [Concomitant]
     Active Substance: LANOLIN
     Indication: Product used for unknown indication
     Route: 065
  10. LIDOCAINE VISCOUS [Concomitant]
     Active Substance: LIDOCAINE HYDROCHLORIDE
     Indication: Product used for unknown indication
     Route: 065
  11. PROVERA [Concomitant]
     Active Substance: MEDROXYPROGESTERONE ACETATE
     Indication: Product used for unknown indication
     Route: 065
  12. OMEGA-3 FATTY ACIDS [Concomitant]
     Active Substance: OMEGA-3 FATTY ACIDS
     Indication: Product used for unknown indication
     Route: 065
  13. ZOFRAN [Concomitant]
     Active Substance: ONDANSETRON HYDROCHLORIDE
     Indication: Product used for unknown indication
     Route: 065
  14. OXYCODONE [Concomitant]
     Active Substance: OXYCODONE
     Indication: Product used for unknown indication
     Route: 065
  15. COMPAZINE [Concomitant]
     Active Substance: PROCHLORPERAZINE MALEATE
     Indication: Product used for unknown indication
     Route: 065
  16. SODIUM FLUORIDE [Concomitant]
     Active Substance: SODIUM FLUORIDE
     Indication: Product used for unknown indication
     Route: 065
  17. SULFAMETHOXAZOLE AND TRIMETHOPRIM [Concomitant]
     Active Substance: SULFAMETHOXAZOLE\TRIMETHOPRIM
     Indication: Product used for unknown indication
     Route: 065
  18. URSODIOL [Concomitant]
     Active Substance: URSODIOL
     Indication: Product used for unknown indication
     Route: 065
  19. VALTREX [Concomitant]
     Active Substance: VALACYCLOVIR HYDROCHLORIDE
     Indication: Product used for unknown indication
     Route: 065
  20. ARTIFICIAL TEARS [Concomitant]
     Active Substance: GLYCERIN\HYPROMELLOSES\POLYETHYLENE GLYCOL 400
     Indication: Product used for unknown indication
     Dosage: DOSAGE FORM: OPHTHALMIC SOLUTION, 2 DROPS PRN
     Route: 047
  21. multiple vitamins-minerals [Concomitant]
     Indication: Product used for unknown indication
     Route: 048

REACTIONS (1)
  - Flank pain [Recovered/Resolved]

NARRATIVE: CASE EVENT DATE: 20220203
